FAERS Safety Report 13265949 (Version 1)
Quarter: 2017Q1

REPORT INFORMATION
  Report Type: Spontaneous
  Country: US (occurrence: US)
  Receive Date: 20170223
  Receipt Date: 20170223
  Transmission Date: 20170428
  Serious: Yes (Hospitalization)
  Sender: FDA-Public Use
  Company Number: US-LANTHEUS-LMI-2016-00209

PATIENT
  Age: 48 Year
  Sex: Female

DRUGS (2)
  1. DEFINITY [Suspect]
     Active Substance: PERFLUTREN
     Indication: STRESS ECHOCARDIOGRAM
     Dosage: 2 ML, UNK
     Route: 040
     Dates: start: 20160412, end: 20160412
  2. LIPITOR [Concomitant]
     Active Substance: ATORVASTATIN CALCIUM
     Indication: BLOOD CHOLESTEROL INCREASED
     Dosage: UNK
     Route: 048

REACTIONS (3)
  - Chest pain [Recovered/Resolved]
  - Supraventricular tachycardia [Recovered/Resolved]
  - Ventricular extrasystoles [Recovered/Resolved]

NARRATIVE: CASE EVENT DATE: 20160412
